FAERS Safety Report 10418166 (Version 2)
Quarter: 2014Q3

REPORT INFORMATION
  Report Type: Spontaneous
  Country: US (occurrence: None)
  Receive Date: 20140827
  Receipt Date: 20140912
  Transmission Date: 20150326
  Serious: Yes (Hospitalization)
  Sender: FDA-Public Use
  Company Number: 2014-US-010394

PATIENT
  Age: 26 Year
  Sex: Female

DRUGS (1)
  1. XYREM [Suspect]
     Active Substance: SODIUM OXYBATE
     Indication: NARCOLEPSY
     Route: 048
     Dates: start: 201107, end: 2011

REACTIONS (5)
  - Condition aggravated [None]
  - Generalised anxiety disorder [None]
  - Drug withdrawal syndrome [None]
  - Impaired work ability [None]
  - Somnolence [None]
